FAERS Safety Report 6768358-6 (Version None)
Quarter: 2010Q2

REPORT INFORMATION
  Report Type: 
  Country: None (occurrence: None)
  Receive Date: 20100614
  Receipt Date: 20100609
  Transmission Date: 20101027
  Serious: Yes (Hospitalization)
  Sender: FDA-Public Use
  Company Number: US-BRISTOL-MYERS SQUIBB COMPANY-15141740

PATIENT
  Age: 79 Year
  Sex: Male
  Weight: 83 kg

DRUGS (4)
  1. ERBITUX [Suspect]
     Indication: OESOPHAGEAL ADENOCARCINOMA
     Dosage: DELAYED BY 1 DAY ON 5/11/10 AGAIN ON 5/25/10 AND GIVEN ON 6/4/10
     Route: 042
     Dates: end: 20100604
  2. CISPLATIN [Suspect]
     Indication: OESOPHAGEAL ADENOCARCINOMA
     Dosage: HELD ON 5/11/10 RESTARTED ON5/18/10. DELAYED AGAIN ON 5/25/10 THEN RESTARTED WITH ON 6/4/10.
     Route: 042
     Dates: end: 20100604
  3. TAXOL [Suspect]
     Indication: OESOPHAGEAL ADENOCARCINOMA
     Dosage: HELD ON 5/11/10.RESUMED ON 5/18/10. AGAIN DELAYED ON 5/25 THEN REDUCED 6/4/10
     Route: 042
     Dates: end: 20100604
  4. COUMADIN [Suspect]
     Indication: CEREBROVASCULAR ACCIDENT

REACTIONS (11)
  - CHILLS [None]
  - DIARRHOEA [None]
  - FATIGUE [None]
  - HYPERNATRAEMIA [None]
  - MUSCULAR WEAKNESS [None]
  - OESOPHAGITIS [None]
  - OROPHARYNGEAL PAIN [None]
  - PLATELET COUNT DECREASED [None]
  - PYREXIA [None]
  - RECTAL HAEMORRHAGE [None]
  - WHITE BLOOD CELL COUNT DECREASED [None]
